FAERS Safety Report 18580669 (Version 1)
Quarter: 2020Q4

REPORT INFORMATION
  Report Type: Spontaneous
  Country: US (occurrence: US)
  Receive Date: 20201204
  Receipt Date: 20201204
  Transmission Date: 20210114
  Serious: Yes (Death, Other)
  Sender: FDA-Public Use
  Company Number: US-PURDUE-USA-2020-0169721

PATIENT
  Age: 32 Year
  Sex: Female

DRUGS (1)
  1. MORPHINE SULFATE EXTENDED-RELEASE TABLETS (RHODES 74-769, 74-862) [Suspect]
     Active Substance: MORPHINE SULFATE
     Indication: CANCER PAIN
     Dosage: UNK
     Route: 048

REACTIONS (3)
  - Death [Fatal]
  - Drug dependence [Unknown]
  - Coma [Fatal]

NARRATIVE: CASE EVENT DATE: 20140823
